FAERS Safety Report 5003490-9 (Version None)
Quarter: 2006Q2

REPORT INFORMATION
  Report Type: 
  Country: None (occurrence: None)
  Receive Date: 20060516
  Receipt Date: 20060509
  Transmission Date: 20061013
  Serious: Yes (Disabling, Other)
  Sender: FDA-Public Use
  Company Number: AT-ABBOTT-06P-009-0332737-00

PATIENT
  Sex: Male
  Weight: 74 kg

DRUGS (1)
  1. REDUCTIL [Suspect]
     Indication: OBESITY
     Route: 065

REACTIONS (2)
  - ERECTILE DYSFUNCTION [None]
  - UROGENITAL DISORDER [None]
